FAERS Safety Report 10578618 (Version 1)
Quarter: 2014Q4

REPORT INFORMATION
  Report Type: Spontaneous
  Country: US (occurrence: None)
  Receive Date: 20141111
  Receipt Date: 20141111
  Transmission Date: 20150529
  Serious: No
  Sender: FDA-Public Use
  Company Number: None

PATIENT
  Age: 66 Year
  Sex: Female
  Weight: 87.54 kg

DRUGS (1)
  1. HUMALOG KWIKPEN [Suspect]
     Active Substance: INSULIN LISPRO
     Indication: DIABETES MELLITUS
     Dosage: 12-19 UNITS, INTO THE MUSCLE
     Dates: start: 20141104, end: 20141110

REACTIONS (2)
  - Product quality issue [None]
  - No therapeutic response [None]

NARRATIVE: CASE EVENT DATE: 20141110
